FAERS Safety Report 24209932 (Version 1)
Quarter: 2024Q3

REPORT INFORMATION
  Report Type: Spontaneous
  Country: US (occurrence: US)
  Receive Date: 20240814
  Receipt Date: 20240814
  Transmission Date: 20241016
  Serious: Yes (Hospitalization)
  Sender: AEGERION
  Company Number: US-AMRYT PHARMACEUTICALS DAC-AEGR007336

PATIENT
  Sex: Female

DRUGS (5)
  1. MYCAPSSA [Suspect]
     Active Substance: OCTREOTIDE
     Indication: Neuroendocrine tumour
     Dosage: 20 MILLIGRAM, BID
     Route: 048
     Dates: end: 20240713
  2. MYCAPSSA [Suspect]
     Active Substance: OCTREOTIDE
     Indication: Gastrointestinal inflammation
     Dosage: 20 MILLIGRAM, BID
     Route: 048
     Dates: start: 2024
  3. MYCAPSSA [Suspect]
     Active Substance: OCTREOTIDE
     Indication: Colitis
  4. TYLENOL [Concomitant]
     Active Substance: ACETAMINOPHEN
     Indication: Product used for unknown indication
     Dosage: UNK
  5. OXYCODONE HYDROCHLORIDE [Concomitant]
     Active Substance: OXYCODONE HYDROCHLORIDE
     Indication: Product used for unknown indication

REACTIONS (3)
  - Knee operation [Unknown]
  - Tongue blistering [Unknown]
  - Off label use [Unknown]
